FAERS Safety Report 7369056-0 (Version None)
Quarter: 2011Q1

REPORT INFORMATION
  Report Type: 
  Country: None (occurrence: None)
  Receive Date: 20110318
  Receipt Date: 20110318
  Transmission Date: 20110831
  Serious: Yes (Life-Threatening, Hospitalization)
  Sender: FDA-Public Use
  Company Number: None

PATIENT
  Age: 30 Year
  Sex: Male
  Weight: 70.7611 kg

DRUGS (8)
  1. CLONAZEPAM [Concomitant]
  2. CLARITHROMYCIN [Concomitant]
  3. AMOXICILLIN [Concomitant]
  4. RISPERIDONE [Concomitant]
  5. CLOZAPINE [Suspect]
     Indication: SCHIZOAFFECTIVE DISORDER
     Dosage: 100 MG AM AND 150 MG US PO
     Route: 048
     Dates: start: 20110113, end: 20110124
  6. VALPROIC ACID [Concomitant]
  7. DIPHENHYDRAMINE HCL [Concomitant]
  8. OMEPRAZOLE [Concomitant]

REACTIONS (17)
  - BLOOD GLUCOSE INCREASED [None]
  - SYSTEMIC INFLAMMATORY RESPONSE SYNDROME [None]
  - ATELECTASIS [None]
  - SOMNOLENCE [None]
  - LEUKOCYTOSIS [None]
  - PLEURAL EFFUSION [None]
  - PNEUMONIA [None]
  - SEPSIS [None]
  - TOOTH INFECTION [None]
  - ASTHENIA [None]
  - PYREXIA [None]
  - TACHYCARDIA [None]
  - DENTAL NECROSIS [None]
  - RADICULAR CYST [None]
  - HYPOTENSION [None]
  - OEDEMA [None]
  - GENERALISED OEDEMA [None]
